FAERS Safety Report 12172653 (Version 1)
Quarter: 2016Q1

REPORT INFORMATION
  Report Type: Other
  Country: DE (occurrence: DE)
  Receive Date: 20160311
  Receipt Date: 20160311
  Transmission Date: 20160526
  Serious: Yes (Congenital Anomaly)
  Sender: FDA-Public Use
  Company Number: DE-MYLANLABS-2016M1010066

PATIENT

DRUGS (5)
  1. ESTRIFAM /00045401/ [Concomitant]
     Active Substance: ESTRADIOL
     Indication: ASSISTED FERTILISATION
     Dosage: 2 MG, TID (6 [MG/D ])
     Route: 064
     Dates: start: 20141016, end: 20141202
  2. FOLIC ACID. [Concomitant]
     Active Substance: FOLIC ACID
     Indication: PROPHYLAXIS OF NEURAL TUBE DEFECT
     Dosage: UNK
     Route: 064
  3. BENSERAZIDE/LEVODOPA [Suspect]
     Active Substance: BENSERAZIDE\LEVODOPA
     Indication: PARKINSON^S DISEASE
     Dosage: 300 [MG/D ] / 75 [MG/D ]/ DOSAGE REDUCTION TO 37.5/ 150 MG/D
     Route: 064
  4. PROGESTAN [Concomitant]
     Active Substance: PROGESTERONE
     Indication: ASSISTED FERTILISATION
     Dosage: 200 MG, TID (600 [MG/D ])
     Route: 064
  5. ROPINIROLE. [Suspect]
     Active Substance: ROPINIROLE
     Indication: PARKINSON^S DISEASE
     Dosage: 10 [MG/D ]/ DOSAGE REDUCTION TO 2MG/D IN EARLY PREGNANCY
     Route: 064
     Dates: start: 20141016, end: 20141126

REACTIONS (2)
  - Foetal exposure during pregnancy [Unknown]
  - Haemangioma [Unknown]

NARRATIVE: CASE EVENT DATE: 20150716
